FAERS Safety Report 15574717 (Version 2)
Quarter: 2018Q4

REPORT INFORMATION
  Report Type: Report from Study
  Country: CN (occurrence: CN)
  Receive Date: 20181101
  Receipt Date: 20181113
  Transmission Date: 20190205
  Serious: Yes (Other)
  Sender: FDA-Public Use
  Company Number: CN-ROCHE-2208510

PATIENT

DRUGS (2)
  1. BEVACIZUMAB. [Suspect]
     Active Substance: BEVACIZUMAB
     Indication: HEPATIC CANCER
     Dosage: DAY 1, FOUR WEEKS AS ONE COURSE, TOTALLY 3 COURSES
     Route: 033
  2. CISPLATIN. [Suspect]
     Active Substance: CISPLATIN
     Indication: HEPATIC CANCER
     Dosage: DAY 1, FOUR WEEKS AS ONE COURSE, TOTALLY 3 COURSES
     Route: 033

REACTIONS (1)
  - Granulocyte count decreased [Unknown]
